FAERS Safety Report 14847582 (Version 7)
Quarter: 2021Q3

REPORT INFORMATION
  Report Type: Report from Study
  Country: FR (occurrence: FR)
  Receive Date: 20180504
  Receipt Date: 20210722
  Transmission Date: 20211014
  Serious: Yes (Hospitalization)
  Sender: FDA-Public Use
  Company Number: FR-TEVA-2018-FR-887981

PATIENT
  Sex: Male

DRUGS (13)
  1. METHOTREXATE. [Suspect]
     Active Substance: METHOTREXATE
     Dosage: 20 MILLIGRAM DAILY; 1/DAY:QD
     Route: 048
     Dates: start: 20171019, end: 20171130
  2. BACTRIM [Concomitant]
     Active Substance: SULFAMETHOXAZOLE\TRIMETHOPRIM
     Indication: ANTIBIOTIC PROPHYLAXIS
  3. PEGASPARGASE [Suspect]
     Active Substance: PEGASPARGASE
     Indication: ACUTE LYMPHOCYTIC LEUKAEMIA
     Dosage: 1/DAY:QD
     Route: 042
     Dates: start: 20170119, end: 20171116
  4. PEGASPARGASE [Suspect]
     Active Substance: PEGASPARGASE
     Dosage: 975 IU (INTERNATIONAL UNIT) DAILY; QD
     Route: 042
     Dates: start: 20171116
  5. 6?MERCAPTOPURINE MONOHYDRATE [Suspect]
     Active Substance: MERCAPTOPURINE
     Dosage: 275 MG, QW
     Route: 065
     Dates: start: 20171129
  6. VINCRISTINE [Suspect]
     Active Substance: VINCRISTINE
     Indication: ACUTE LYMPHOCYTIC LEUKAEMIA
     Dosage: 1.2 MILLIGRAM DAILY; 1X/DAY:QD
     Route: 042
     Dates: start: 20171012, end: 20171116
  7. 6?MERCAPTOPURINE MONOHYDRATE [Suspect]
     Active Substance: MERCAPTOPURINE
     Indication: ACUTE LYMPHOCYTIC LEUKAEMIA
     Dosage: 275 MG, 1X/WEEK
     Route: 065
     Dates: start: 20171012, end: 20171129
  8. METHOTREXATE. [Suspect]
     Active Substance: METHOTREXATE
     Dosage: 12 MILLIGRAM DAILY; 1X/DAY:QD
     Route: 037
     Dates: start: 20171013, end: 20171110
  9. DEXAMETHASONE. [Suspect]
     Active Substance: DEXAMETHASONE
     Indication: ACUTE LYMPHOCYTIC LEUKAEMIA
     Dosage: 5 MILLIGRAM DAILY; 1X/DAY:QD
     Route: 048
     Dates: start: 20171012, end: 20171113
  10. METHOTREXATE. [Suspect]
     Active Substance: METHOTREXATE
     Indication: ACUTE LYMPHOCYTIC LEUKAEMIA
     Route: 048
     Dates: start: 20171013, end: 20171110
  11. VINCRISTINE [Suspect]
     Active Substance: VINCRISTINE
     Dosage: 1.2 MILLIGRAM DAILY; QD
     Route: 042
     Dates: start: 20171116
  12. DEXAMETHASONE. [Suspect]
     Active Substance: DEXAMETHASONE
     Dosage: 5 MILLIGRAM DAILY; QD
     Route: 048
     Dates: start: 20171113
  13. BACTRIM [Concomitant]
     Active Substance: SULFAMETHOXAZOLE\TRIMETHOPRIM
     Indication: PRODUCT USED FOR UNKNOWN INDICATION
     Route: 065

REACTIONS (1)
  - Decreased appetite [Recovered/Resolved]

NARRATIVE: CASE EVENT DATE: 20171204
